FAERS Safety Report 24461895 (Version 1)
Quarter: 2024Q4

REPORT INFORMATION
  Report Type: Report from Study
  Country: JP (occurrence: JP)
  Receive Date: 20241018
  Receipt Date: 20241018
  Transmission Date: 20250114
  Serious: No
  Sender: ROCHE
  Company Number: JP-ROCHE-3566005

PATIENT
  Age: 79 Year
  Sex: Male
  Weight: 68.0 kg

DRUGS (4)
  1. RITUXAN [Suspect]
     Active Substance: RITUXIMAB
     Indication: Acquired haemophilia
     Dosage: 600 MG/DAY
     Route: 041
     Dates: start: 20240105, end: 20240105
  2. RITUXAN [Suspect]
     Active Substance: RITUXIMAB
     Indication: Factor VIII deficiency
     Dosage: 600 MG/DAY
     Route: 041
     Dates: start: 20240112, end: 20240112
  3. PREDNISOLONE [Concomitant]
     Active Substance: PREDNISOLONE
     Dates: start: 20231110
  4. CYCLOPHOSPHAMIDE [Concomitant]
     Active Substance: CYCLOPHOSPHAMIDE
     Dates: start: 20240408

REACTIONS (2)
  - Off label use [Unknown]
  - No adverse event [Unknown]
